FAERS Safety Report 9430876 (Version 1)
Quarter: 2013Q3

REPORT INFORMATION
  Report Type: Spontaneous
  Country: US (occurrence: US)
  Receive Date: 20130730
  Receipt Date: 20130730
  Transmission Date: 20140515
  Serious: No
  Sender: FDA-Public Use
  Company Number: US-ABBOTT-13P-163-1102647-00

PATIENT
  Age: 67 Year
  Sex: Female
  Weight: 63.56 kg

DRUGS (4)
  1. NIASPAN (COATED) [Suspect]
     Indication: LIPIDS INCREASED
     Dosage: AT BEDTIME
     Dates: start: 201211
  2. ATORVASTATIN [Concomitant]
     Indication: PRODUCT USED FOR UNKNOWN INDICATION
  3. ZETIA [Concomitant]
     Indication: PRODUCT USED FOR UNKNOWN INDICATION
  4. LORAZEPAM [Concomitant]
     Indication: PRODUCT USED FOR UNKNOWN INDICATION

REACTIONS (3)
  - Erythema [Recovering/Resolving]
  - Pruritus [Recovering/Resolving]
  - Dry skin [Recovering/Resolving]
